FAERS Safety Report 4316723-9 (Version None)
Quarter: 2004Q1

REPORT INFORMATION
  Report Type: 
  Country: None (occurrence: None)
  Receive Date: 20040311
  Receipt Date: 20040301
  Transmission Date: 20041129
  Serious: Yes (Other)
  Sender: FDA-Public Use
  Company Number: 200301107

PATIENT
  Age: 2 Year
  Sex: Male
  Weight: 14.96 kg

DRUGS (4)
  1. TYLENOL [Suspect]
     Indication: PYREXIA
     Dosage: 240 MG Q4H PO
     Route: 048
     Dates: start: 20030616, end: 20030616
  2. CHILDREN'S ADVIL [Suspect]
     Indication: PYREXIA
     Dosage: 1.5 TSP Q8H PO
     Route: 048
     Dates: start: 20030616, end: 20030616
  3. ZYRTEC [Concomitant]
  4. SINGULAIR [Concomitant]

REACTIONS (23)
  - CHILLS [None]
  - CONSTIPATION [None]
  - COUGH [None]
  - CROUP INFECTIOUS [None]
  - DYSPNOEA [None]
  - ECZEMA [None]
  - EYE REDNESS [None]
  - EYE SWELLING [None]
  - FEEDING PROBLEM IN CHILD [None]
  - HOARSENESS [None]
  - HYPERSENSITIVITY [None]
  - LOCAL SWELLING [None]
  - LYMPHADENOPATHY [None]
  - OROPHARYNGEAL SWELLING [None]
  - PHARYNGOLARYNGEAL PAIN [None]
  - PYREXIA [None]
  - RASH [None]
  - RHINORRHOEA [None]
  - SINUSITIS [None]
  - SPEECH DISORDER [None]
  - STRIDOR [None]
  - VOMITING [None]
  - WHEEZING [None]
